FAERS Safety Report 8053948-3 (Version None)
Quarter: 2012Q1

REPORT INFORMATION
  Report Type: 
  Country: None (occurrence: None)
  Receive Date: 20120118
  Receipt Date: 20120105
  Transmission Date: 20120608
  Serious: Yes (Other)
  Sender: FDA-Public Use
  Company Number: US-PFIZER INC-2012003984

PATIENT
  Sex: Female
  Weight: 88.4 kg

DRUGS (3)
  1. OXYCODONE [Concomitant]
     Indication: PAIN
     Dosage: UNK
  2. VERAPAMIL [Concomitant]
     Indication: HYPERTENSION
     Dosage: 360 MG
  3. LYRICA [Suspect]
     Indication: ARTHRALGIA
     Dosage: 75 MG, 2X/DAY
     Route: 048
     Dates: start: 20111101

REACTIONS (1)
  - WEIGHT INCREASED [None]
